FAERS Safety Report 8029103-X (Version None)
Quarter: 2012Q1

REPORT INFORMATION
  Report Type: 
  Country: None (occurrence: None)
  Receive Date: 20120106
  Receipt Date: 20120103
  Transmission Date: 20120608
  Serious: Yes (Other)
  Sender: FDA-Public Use
  Company Number: US-TEVA-315796USA

PATIENT
  Sex: Female
  Weight: 54.48 kg

DRUGS (2)
  1. PROAIR HFA [Suspect]
     Dosage: EVERY 6 HRS. PRN
     Dates: start: 20111201, end: 20111201
  2. CLINDAMYCIN [Concomitant]

REACTIONS (3)
  - EYE SWELLING [None]
  - ANGIOEDEMA [None]
  - SWELLING FACE [None]
